FAERS Safety Report 18737131 (Version 1)
Quarter: 2021Q1

REPORT INFORMATION
  Report Type: Spontaneous
  Country: US (occurrence: US)
  Receive Date: 20210113
  Receipt Date: 20210113
  Transmission Date: 20210419
  Serious: No
  Sender: FDA-Public Use
  Company Number: US-IBSA PHARMA INC.-2020IBS000255

PATIENT
  Age: 61 Year
  Sex: Female
  Weight: 97.16 kg

DRUGS (18)
  1. LEVOTHYROXINE SODIUM. [Suspect]
     Active Substance: LEVOTHYROXINE SODIUM
     Dosage: 125MCG DAILY
     Route: 048
     Dates: start: 201910, end: 20200109
  2. ATENOLOL?CHLORTHALIDONE [Suspect]
     Active Substance: ATENOLOL\CHLORTHALIDONE
     Indication: PRODUCT USED FOR UNKNOWN INDICATION
     Dosage: 1/2 TABLET DAILY
     Route: 048
     Dates: end: 20191030
  3. NORCO [Suspect]
     Active Substance: ACETAMINOPHEN\HYDROCODONE BITARTRATE
     Indication: ABDOMINAL PAIN UPPER
  4. ATENOLOL?CHLORTHALIDONE [Suspect]
     Active Substance: ATENOLOL\CHLORTHALIDONE
     Dosage: 1 TABLET DAILY
     Route: 048
     Dates: start: 20191030, end: 201910
  5. LIOTHYRONINE [Concomitant]
     Active Substance: LIOTHYRONINE
     Indication: PRODUCT USED FOR UNKNOWN INDICATION
  6. NORCO [Suspect]
     Active Substance: ACETAMINOPHEN\HYDROCODONE BITARTRATE
     Indication: ARTHRALGIA
  7. PANTOPRAZOLE [Concomitant]
     Active Substance: PANTOPRAZOLE
     Indication: PRODUCT USED FOR UNKNOWN INDICATION
  8. LEVOTHYROXINE SODIUM. [Suspect]
     Active Substance: LEVOTHYROXINE SODIUM
     Dosage: 112MCG DAILY
     Route: 048
     Dates: start: 20200109
  9. KORLYM [Suspect]
     Active Substance: MIFEPRISTONE
     Indication: CUSHING^S SYNDROME
     Dosage: 300MG DAILY
     Route: 048
     Dates: start: 20191023, end: 20191105
  10. KORLYM [Suspect]
     Active Substance: MIFEPRISTONE
     Dosage: 600MG DAILY
     Route: 048
     Dates: start: 20191106
  11. XANAX [Suspect]
     Active Substance: ALPRAZOLAM
     Indication: PRODUCT USED FOR UNKNOWN INDICATION
     Route: 048
  12. FOLIC ACID. [Concomitant]
     Active Substance: FOLIC ACID
     Indication: PRODUCT USED FOR UNKNOWN INDICATION
  13. LEVOTHYROXINE SODIUM. [Suspect]
     Active Substance: LEVOTHYROXINE SODIUM
     Indication: PRODUCT USED FOR UNKNOWN INDICATION
     Dosage: 137MCG DAILY
     Route: 048
     Dates: end: 201910
  14. DULOXETINE. [Concomitant]
     Active Substance: DULOXETINE
     Indication: PRODUCT USED FOR UNKNOWN INDICATION
  15. NORCO [Suspect]
     Active Substance: ACETAMINOPHEN\HYDROCODONE BITARTRATE
     Indication: MYALGIA
  16. BACLOFEN. [Concomitant]
     Active Substance: BACLOFEN
     Indication: PRODUCT USED FOR UNKNOWN INDICATION
  17. SPIRONOLACTONE. [Suspect]
     Active Substance: SPIRONOLACTONE
     Indication: PRODUCT USED FOR UNKNOWN INDICATION
     Dosage: 25MG TWICE DAILY
     Route: 048
     Dates: end: 20200109
  18. ATENOLOL. [Suspect]
     Active Substance: ATENOLOL
     Indication: PRODUCT USED FOR UNKNOWN INDICATION
     Dosage: 50MG
     Route: 048
     Dates: start: 201910

REACTIONS (34)
  - Peripheral swelling [Recovered/Resolved]
  - Back injury [Unknown]
  - Tremor [Recovering/Resolving]
  - Muscular weakness [Not Recovered/Not Resolved]
  - Blood thyroid stimulating hormone decreased [Unknown]
  - Heart rate increased [Unknown]
  - Dehydration [Unknown]
  - Blood iron decreased [Unknown]
  - Rash [Unknown]
  - Hyperhidrosis [Not Recovered/Not Resolved]
  - Headache [Not Recovered/Not Resolved]
  - Blood pressure increased [Unknown]
  - Pain [Unknown]
  - Pain [Recovering/Resolving]
  - Arthralgia [Not Recovered/Not Resolved]
  - Psoriasis [Unknown]
  - Drug level above therapeutic [Unknown]
  - Hypersensitivity [Recovering/Resolving]
  - Osteoarthritis [Not Recovered/Not Resolved]
  - Omphalitis [Recovering/Resolving]
  - Nausea [Recovering/Resolving]
  - Arthralgia [Recovering/Resolving]
  - Fatigue [Unknown]
  - Myalgia [Not Recovered/Not Resolved]
  - Somnolence [Unknown]
  - Abdominal pain upper [Recovered/Resolved]
  - Blood thyroid stimulating hormone increased [Unknown]
  - Dizziness [Recovering/Resolving]
  - Blood glucose abnormal [Unknown]
  - Pruritus [Recovered/Resolved]
  - Weight decreased [Unknown]
  - Joint swelling [Not Recovered/Not Resolved]
  - Sneezing [Recovering/Resolving]
  - Somnolence [Unknown]

NARRATIVE: CASE EVENT DATE: 201910
